FAERS Safety Report 18967819 (Version 1)
Quarter: 2021Q1

REPORT INFORMATION
  Report Type: Report from Study
  Country: BR (occurrence: BR)
  Receive Date: 20210304
  Receipt Date: 20210304
  Transmission Date: 20210420
  Serious: Yes (Other)
  Sender: FDA-Public Use
  Company Number: NVSC2021BR043467

PATIENT
  Sex: Female

DRUGS (1)
  1. TEGRETOL XR [Suspect]
     Active Substance: CARBAMAZEPINE
     Indication: PRODUCT USED FOR UNKNOWN INDICATION
     Dosage: 200 MG, (2 IN THE MORNING AND 1 AT NIGHT)
     Route: 065

REACTIONS (14)
  - Hand fracture [Unknown]
  - Head injury [Unknown]
  - Nervousness [Unknown]
  - Product dose omission issue [Unknown]
  - Lower limb fracture [Unknown]
  - Visual impairment [Unknown]
  - Ill-defined disorder [Unknown]
  - Loss of consciousness [Unknown]
  - Fall [Unknown]
  - Anal incontinence [Unknown]
  - Product packaging quantity issue [Unknown]
  - Seizure [Unknown]
  - Facial bones fracture [Unknown]
  - Illness [Unknown]
